FAERS Safety Report 21055697 (Version 1)
Quarter: 2022Q3

REPORT INFORMATION
  Report Type: Spontaneous
  Country: CN (occurrence: None)
  Receive Date: 20220708
  Receipt Date: 20220708
  Transmission Date: 20221026
  Serious: Yes (Other)
  Sender: FDA-Public Use
  Company Number: CN-ROCHE-3128531

PATIENT
  Age: 48 Year
  Sex: Female
  Weight: 73.3 kg

DRUGS (2)
  1. VEMURAFENIB [Suspect]
     Active Substance: VEMURAFENIB
     Indication: Malignant melanoma
     Route: 048
     Dates: start: 20220523
  2. TORIPALIMAB [Concomitant]
     Active Substance: TORIPALIMAB
     Indication: Malignant melanoma
     Route: 041
     Dates: start: 20220525

REACTIONS (3)
  - Myelosuppression [Not Recovered/Not Resolved]
  - Asthenia [Unknown]
  - Decreased appetite [Unknown]

NARRATIVE: CASE EVENT DATE: 20220525
